FAERS Safety Report 18600234 (Version 2)
Quarter: 2021Q1

REPORT INFORMATION
  Report Type: Report from Study
  Country: GB (occurrence: GB)
  Receive Date: 20201210
  Receipt Date: 20210323
  Transmission Date: 20210419
  Serious: Yes (Hospitalization)
  Sender: FDA-Public Use
  Company Number: NVSC2020GB297091

PATIENT
  Sex: Female

DRUGS (1)
  1. COSENTYX [Suspect]
     Active Substance: SECUKINUMAB
     Indication: PSORIATIC ARTHROPATHY
     Dosage: 150 MG, QMO
     Route: 058
     Dates: start: 20180616

REACTIONS (6)
  - Dyspnoea [Unknown]
  - Bacterial infection [Unknown]
  - Viral infection [Unknown]
  - Cough [Unknown]
  - Bronchitis [Unknown]
  - Product dose omission issue [Unknown]
